FAERS Safety Report 7458633-4 (Version None)
Quarter: 2011Q2

REPORT INFORMATION
  Report Type: 
  Country: None (occurrence: None)
  Receive Date: 20110504
  Receipt Date: 20110504
  Transmission Date: 20111010
  Serious: Yes (Other)
  Sender: FDA-Public Use
  Company Number: CH-PFIZER INC-2011040207

PATIENT
  Age: 53 Year
  Sex: Male

DRUGS (3)
  1. SURMONTIL [Concomitant]
     Dosage: 100 MG, 1X/DAY
     Route: 048
     Dates: start: 20100801
  2. LYRICA [Suspect]
     Indication: GENERALISED ANXIETY DISORDER
     Dosage: 50 MG/DAY
     Route: 048
     Dates: start: 20110131
  3. LYRICA [Suspect]
     Indication: DEPRESSION
     Dosage: 25MG IN MORNING, 50MG IN EVENING
     Route: 048
     Dates: end: 20110225

REACTIONS (11)
  - SLEEP DISORDER [None]
  - SOMNOLENCE [None]
  - WEIGHT INCREASED [None]
  - DEPRESSION [None]
  - ABDOMINAL PAIN [None]
  - DRY MOUTH [None]
  - MENTAL DISORDER [None]
  - SUICIDAL IDEATION [None]
  - HEADACHE [None]
  - ANXIETY [None]
  - INCREASED APPETITE [None]
